FAERS Safety Report 23869620 (Version 2)
Quarter: 2024Q2

REPORT INFORMATION
  Report Type: Report from Study
  Country: CN (occurrence: CN)
  Receive Date: 20240517
  Receipt Date: 20240606
  Transmission Date: 20240715
  Serious: Yes (Hospitalization)
  Sender: FDA-Public Use
  Company Number: CN-Eisai-EC-2024-165596

PATIENT
  Age: 42 Year
  Sex: Female
  Weight: 44.6 kg

DRUGS (11)
  1. ERIBULIN [Suspect]
     Active Substance: ERIBULIN
     Indication: Breast cancer metastatic
     Route: 042
     Dates: start: 20240316, end: 20240330
  2. ERIBULIN [Suspect]
     Active Substance: ERIBULIN
     Route: 042
     Dates: start: 20240415, end: 20240422
  3. ERIBULIN [Suspect]
     Active Substance: ERIBULIN
     Route: 042
     Dates: start: 20240509, end: 20240509
  4. CAPECITABINE [Suspect]
     Active Substance: CAPECITABINE
     Indication: Breast cancer metastatic
     Route: 048
     Dates: start: 20240316, end: 20240321
  5. CAPECITABINE [Suspect]
     Active Substance: CAPECITABINE
     Route: 048
     Dates: start: 20240329, end: 20240329
  6. CAPECITABINE [Suspect]
     Active Substance: CAPECITABINE
     Dosage: MORNING 1000 MG, NIGHT 1500 MG
     Route: 048
     Dates: start: 20240415, end: 20240421
  7. CAPECITABINE [Suspect]
     Active Substance: CAPECITABINE
     Route: 048
     Dates: start: 20240422, end: 20240422
  8. CAPECITABINE [Suspect]
     Active Substance: CAPECITABINE
     Dosage: MORNING 1000 MG, NIGHT 1500 MG
     Route: 048
     Dates: start: 20240423, end: 20240427
  9. CAPECITABINE [Suspect]
     Active Substance: CAPECITABINE
     Route: 048
     Dates: start: 20240428, end: 20240428
  10. CAPECITABINE [Suspect]
     Active Substance: CAPECITABINE
     Dosage: MORNING 1000 MG, NIGHT 1500 MG
     Route: 048
     Dates: start: 20240509, end: 20240517
  11. INTACTED PROTEIN ENTERAL NUTRITION POWDER [Concomitant]
     Indication: Nutritional supplementation
     Dosage: Q.S. PRN
     Route: 048
     Dates: start: 20240423

REACTIONS (2)
  - Hypokalaemia [Recovering/Resolving]
  - Hypercalcaemia [Recovered/Resolved]

NARRATIVE: CASE EVENT DATE: 20240507
